FAERS Safety Report 16720683 (Version 1)
Quarter: 2019Q3

REPORT INFORMATION
  Report Type: Report from Study
  Country: PL (occurrence: PL)
  Receive Date: 20190820
  Receipt Date: 20190820
  Transmission Date: 20191005
  Serious: Yes (Life-Threatening, Hospitalization)
  Sender: FDA-Public Use
  Company Number: PL-ROCHE-2382085

PATIENT
  Age: 81 Year
  Sex: Female
  Weight: 76 kg

DRUGS (2)
  1. RITUXIMAB. [Suspect]
     Active Substance: RITUXIMAB
     Indication: MANTLE CELL LYMPHOMA
     Dosage: AS PER PROTOCOL MEDICATION KIT NUMBERS 34967, 19020-01, 19020-02)?DATE OF MOST RECENT DOSE: 21/JAN/2
     Route: 042
     Dates: start: 20140401
  2. BENDAMUSTINE HYDROCHLORIDE. [Suspect]
     Active Substance: BENDAMUSTINE HYDROCHLORIDE
     Indication: MANTLE CELL LYMPHOMA
     Dosage: (MEDICATION KIT NUMBERS 11855-04, 11855-05)?DATE OF MOST RECENT DOSE: 20/AUG/2014
     Route: 042
     Dates: start: 20140401

REACTIONS (1)
  - Adenocarcinoma of colon [Not Recovered/Not Resolved]

NARRATIVE: CASE EVENT DATE: 20181126
